FAERS Safety Report 11784041 (Version 1)
Quarter: 2015Q4

REPORT INFORMATION
  Report Type: Spontaneous
  Country: TR (occurrence: TR)
  Receive Date: 20151128
  Receipt Date: 20151128
  Transmission Date: 20160305
  Serious: Yes (Hospitalization)
  Sender: FDA-Public Use
  Company Number: TR-ACCORD-035742

PATIENT
  Age: 68 Year
  Sex: Female

DRUGS (3)
  1. BEVACIZUMAB [Suspect]
     Active Substance: BEVACIZUMAB
     Indication: COLON CANCER METASTATIC
     Dosage: 7.5 MG/KG (1 DAY)
  2. CAPECITABINE. [Suspect]
     Active Substance: CAPECITABINE
     Indication: COLON CANCER METASTATIC
     Dosage: 2000 MG/M2 (1-14 DAYS),
  3. OXALIPLATIN. [Suspect]
     Active Substance: OXALIPLATIN
     Indication: COLON CANCER METASTATIC
     Dosage: 130 MG/M2 (1 DAY)

REACTIONS (4)
  - Myalgia [Unknown]
  - Arthralgia [Unknown]
  - Thrombocytopenia [Recovered/Resolved]
  - Lupus-like syndrome [Unknown]
